FAERS Safety Report 7783033-7 (Version None)
Quarter: 2011Q3

REPORT INFORMATION
  Report Type: 
  Country: None (occurrence: None)
  Receive Date: 20110928
  Receipt Date: 20110923
  Transmission Date: 20111222
  Serious: No
  Sender: FDA-Public Use
  Company Number: US-PFIZER INC-2011181612

PATIENT
  Age: 60 Year
  Sex: Male
  Weight: 94.785 kg

DRUGS (6)
  1. LYRICA [Suspect]
     Indication: CHEST PAIN
  2. ATENOLOL [Concomitant]
     Indication: HYPERTENSION
     Dosage: 25 MG, 2X/DAY
  3. LYRICA [Suspect]
     Indication: PAIN
     Dosage: 50 MG, 1X/DAY
     Route: 048
     Dates: start: 20110621, end: 20110701
  4. SIMCOR [Concomitant]
     Indication: BLOOD CHOLESTEROL INCREASED
     Dosage: 500MG DAILY
  5. BACLOFEN [Concomitant]
     Dosage: 10 MG, 1X/DAY
  6. OMEPRAZOLE [Concomitant]
     Indication: GASTRIC DISORDER
     Dosage: 20MG DAILY

REACTIONS (2)
  - VISION BLURRED [None]
  - PAIN IN EXTREMITY [None]
